FAERS Safety Report 6509270-7 (Version None)
Quarter: 2009Q4

REPORT INFORMATION
  Report Type: 
  Country: None (occurrence: None)
  Receive Date: 20091222
  Receipt Date: 20091216
  Transmission Date: 20100525
  Serious: Yes (Hospitalization)
  Sender: FDA-Public Use
  Company Number: FR-BIOGENIDEC-2009BI041453

PATIENT
  Age: 68 Year
  Sex: Male

DRUGS (9)
  1. TYSABRI [Suspect]
     Indication: MULTIPLE SCLEROSIS
     Route: 042
     Dates: start: 20070601, end: 20090101
  2. PREVISCAN [Concomitant]
     Route: 048
  3. MOPRAL [Concomitant]
  4. ZOXAN [Concomitant]
  5. AMLOR [Concomitant]
  6. DANTRIUM [Concomitant]
  7. LIORESAL [Concomitant]
  8. DICLOCIL [Concomitant]
  9. XALATAN [Concomitant]

REACTIONS (1)
  - ISCHAEMIC STROKE [None]
